FAERS Safety Report 21283801 (Version 1)
Quarter: 2022Q3

REPORT INFORMATION
  Report Type: Spontaneous
  Country: US (occurrence: US)
  Receive Date: 20220901
  Receipt Date: 20220901
  Transmission Date: 20221026
  Serious: No
  Sender: FDA-Public Use
  Company Number: US-ABBVIE-21K-163-4188318-00

PATIENT
  Age: 36 Year
  Sex: Female
  Weight: 99.880 kg

DRUGS (9)
  1. LUPRON DEPOT [Suspect]
     Active Substance: LEUPROLIDE ACETATE
     Indication: Endometriosis
     Route: 030
     Dates: start: 201809, end: 201809
  2. LUPRON DEPOT [Suspect]
     Active Substance: LEUPROLIDE ACETATE
     Route: 030
     Dates: start: 202012, end: 202105
  3. PFIZER-BIONTECH COVID-19 VACCINE [Concomitant]
     Active Substance: TOZINAMERAN
     Indication: COVID-19 immunisation
     Route: 030
     Dates: start: 20210401, end: 20210401
  4. PFIZER-BIONTECH COVID-19 VACCINE [Concomitant]
     Active Substance: TOZINAMERAN
     Route: 030
     Dates: start: 20210422, end: 20210422
  5. PFIZER-BIONTECH COVID-19 VACCINE [Concomitant]
     Active Substance: TOZINAMERAN
     Route: 030
     Dates: start: 20211026, end: 20211026
  6. ZOLOFT [Concomitant]
     Active Substance: SERTRALINE HYDROCHLORIDE
     Indication: Depression
     Route: 065
  7. GABAPENTIN [Concomitant]
     Active Substance: GABAPENTIN
     Indication: Restless legs syndrome
     Route: 065
  8. LEVOTHYROXINE [Concomitant]
     Active Substance: LEVOTHYROXINE
     Indication: Hypothyroidism
     Route: 065
  9. KROGER WOMENS MULTIVITAMINS [Concomitant]
     Indication: Product used for unknown indication
     Route: 065

REACTIONS (4)
  - Endometriosis [Not Recovered/Not Resolved]
  - Hot flush [Recovered/Resolved]
  - Arthralgia [Recovered/Resolved]
  - Bone pain [Recovered/Resolved]

NARRATIVE: CASE EVENT DATE: 20210601
